FAERS Safety Report 7841413-5 (Version None)
Quarter: 2011Q4

REPORT INFORMATION
  Report Type: 
  Country: None (occurrence: None)
  Receive Date: 20111025
  Receipt Date: 20111019
  Transmission Date: 20120403
  Serious: Yes (Hospitalization)
  Sender: FDA-Public Use
  Company Number: US-VERTEX PHARMACEUTICALS INC.-AE-2011-001356

PATIENT
  Sex: Male

DRUGS (6)
  1. PEGINTERFERON [Concomitant]
  2. INCIVEK [Suspect]
     Route: 048
  3. RIBAVIRIN [Concomitant]
     Indication: HEPATITIS C
     Dates: start: 20110702
  4. RIBAVIRIN [Concomitant]
  5. INCIVEK [Suspect]
     Indication: HEPATITIS C
     Route: 048
     Dates: start: 20110702
  6. PEGINTERFERON [Concomitant]
     Indication: HEPATITIS C
     Dates: start: 20110702

REACTIONS (2)
  - NEUTROPENIA [None]
  - CELLULITIS [None]
